FAERS Safety Report 9365741 (Version 1)
Quarter: 2013Q2

REPORT INFORMATION
  Report Type: Spontaneous
  Country: FR (occurrence: FR)
  Receive Date: 20130625
  Receipt Date: 20130625
  Transmission Date: 20140414
  Serious: Yes (Hospitalization)
  Sender: FDA-Public Use
  Company Number: FR-009507513-1306FRA007933

PATIENT
  Age: 53 Year
  Sex: Female

DRUGS (10)
  1. FOSAVANCE [Suspect]
     Indication: OSTEOPOROSIS
     Dosage: UNK
     Route: 048
     Dates: end: 20100507
  2. MABTHERA [Suspect]
     Indication: NON-HODGKIN^S LYMPHOMA
     Dosage: UNK
     Route: 042
     Dates: end: 20100504
  3. ENDOXAN [Suspect]
     Indication: NON-HODGKIN^S LYMPHOMA
     Dosage: UNK
     Route: 042
     Dates: end: 20100504
  4. DOXORUBICIN [Suspect]
     Indication: NON-HODGKIN^S LYMPHOMA
     Dosage: UNK
     Route: 042
     Dates: end: 20100504
  5. VINCRISTINE SULFATE [Suspect]
     Indication: NON-HODGKIN^S LYMPHOMA
     Dosage: UNK
     Route: 042
     Dates: end: 20100504
  6. PREDNISONE [Suspect]
     Indication: NON-HODGKIN^S LYMPHOMA
     Dosage: UNK
     Route: 042
     Dates: end: 20100504
  7. PROFENID [Suspect]
     Indication: BACK PAIN
     Dosage: UNK
     Route: 042
     Dates: start: 20100509, end: 20100509
  8. FEMARA [Concomitant]
  9. PLAVIX [Concomitant]
  10. SECTRAL [Concomitant]

REACTIONS (1)
  - Renal failure acute [Not Recovered/Not Resolved]
